FAERS Safety Report 10263208 (Version 1)
Quarter: 2014Q2

REPORT INFORMATION
  Report Type: Report from Study
  Country: US (occurrence: US)
  Receive Date: 20140626
  Receipt Date: 20140626
  Transmission Date: 20141212
  Serious: Yes (Death)
  Sender: FDA-Public Use
  Company Number: US-MYLANLABS-2014S1007910

PATIENT
  Age: 66 Year
  Sex: Female
  Weight: 48.31 kg

DRUGS (9)
  1. CLOZAPINE TABLETS [Suspect]
     Indication: SCHIZOPHRENIA
     Route: 048
  2. ADVAIR [Concomitant]
     Indication: DYSPNOEA
  3. MORPHINE [Concomitant]
     Indication: PAIN
  4. SPIRIVA [Concomitant]
     Indication: DYSPNOEA
  5. TYLENOL [Concomitant]
     Indication: PAIN
  6. ARTIFICIAL TEARS /00445101/ [Concomitant]
  7. ALBUTEROL [Concomitant]
     Indication: DYSPNOEA
  8. ASA [Concomitant]
     Indication: PROPHYLAXIS
  9. LIPITOR [Concomitant]
     Indication: BLOOD CHOLESTEROL INCREASED

REACTIONS (1)
  - Neoplasm malignant [Fatal]
